FAERS Safety Report 6870592-1 (Version None)
Quarter: 2010Q3

REPORT INFORMATION
  Report Type: 
  Country: None (occurrence: None)
  Receive Date: 20100723
  Receipt Date: 20081031
  Transmission Date: 20110219
  Serious: Yes (Other)
  Sender: FDA-Public Use
  Company Number: PHHY2008BR36971

PATIENT
  Sex: Male

DRUGS (2)
  1. GLEEVEC [Suspect]
     Indication: CHRONIC MYELOID LEUKAEMIA
     Dosage: UNK
  2. GLEEVEC [Suspect]
     Dosage: 800 MG, UNK

REACTIONS (2)
  - DRUG INEFFECTIVE [None]
  - MYELOFIBROSIS [None]
